FAERS Safety Report 6977174-1 (Version None)
Quarter: 2010Q3

REPORT INFORMATION
  Report Type: 
  Country: None (occurrence: None)
  Receive Date: 20100910
  Receipt Date: 20100903
  Transmission Date: 20110219
  Serious: Yes (Other)
  Sender: FDA-Public Use
  Company Number: NO-JNJFOC-20100901399

PATIENT
  Age: 2 Day
  Sex: Male

DRUGS (1)
  1. FENTANYL CITRATE [Suspect]
     Indication: PRODUCT USED FOR UNKNOWN INDICATION
     Route: 062

REACTIONS (4)
  - MUSCLE RIGIDITY [None]
  - MUSCLE SPASMS [None]
  - OFF LABEL USE [None]
  - TARDIVE DYSKINESIA [None]
